FAERS Safety Report 6009154-7 (Version None)
Quarter: 2008Q4

REPORT INFORMATION
  Report Type: 
  Country: None (occurrence: None)
  Receive Date: 20081216
  Receipt Date: 20081204
  Transmission Date: 20090506
  Serious: Yes (Other)
  Sender: FDA-Public Use
  Company Number: 2008-04559

PATIENT
  Age: 76 Year
  Sex: Female
  Weight: 83.9 kg

DRUGS (1)
  1. VELCADE [Suspect]
     Indication: MULTIPLE MYELOMA

REACTIONS (3)
  - DISEASE PROGRESSION [None]
  - HERPES ZOSTER [None]
  - RASH [None]
